FAERS Safety Report 11212155 (Version 1)
Quarter: 2015Q2

REPORT INFORMATION
  Report Type: Spontaneous
  Country: NL (occurrence: NL)
  Receive Date: 20150623
  Receipt Date: 20150623
  Transmission Date: 20150821
  Serious: Yes (Life-Threatening, Hospitalization, Other)
  Sender: FDA-Public Use
  Company Number: NL-TEVA-570548ISR

PATIENT
  Age: 66 Year
  Sex: Female

DRUGS (3)
  1. METHOTREXATE (METHOTREXATE SODIUM) [Suspect]
     Active Substance: METHOTREXATE SODIUM
     Indication: RHEUMATOID ARTHRITIS
     Dosage: ONCE EVERY WEEK 8 PIECES
     Route: 048
     Dates: start: 2001
  2. HYDROXYCHLOROQUINE TABLET OMHULD 200MG [Concomitant]
     Dosage: ONCE DAILY ONE PIECE
     Route: 048
     Dates: start: 20140616, end: 20150508
  3. ADALIMUMAB INJECTIE [Interacting]
     Active Substance: ADALIMUMAB
     Indication: RHEUMATOID ARTHRITIS
     Dosage: ONCE EVERY TWO WEEKS 40 MG SUBCUTANEOUS
     Route: 058
     Dates: start: 200412, end: 20150203

REACTIONS (2)
  - Breast cancer [Unknown]
  - Drug interaction [Unknown]

NARRATIVE: CASE EVENT DATE: 20150203
